FAERS Safety Report 13700893 (Version 2)
Quarter: 2017Q4

REPORT INFORMATION
  Report Type: Report from Study
  Country: JP (occurrence: JP)
  Receive Date: 20170629
  Receipt Date: 20171201
  Transmission Date: 20180320
  Serious: Yes (Death)
  Sender: FDA-Public Use
  Company Number: JP-UCBSA-2017024941

PATIENT
  Age: 65 Year
  Sex: Female
  Weight: 59 kg

DRUGS (8)
  1. PHENOBAL [Concomitant]
     Active Substance: PHENOBARBITAL
     Indication: FOCAL DYSCOGNITIVE SEIZURES
     Dosage: UNK
     Dates: start: 20170409, end: 20170409
  2. LEVETIRACETAM. [Suspect]
     Active Substance: LEVETIRACETAM
     Indication: FOCAL DYSCOGNITIVE SEIZURES
     Dosage: 500 MG, 2X/DAY (BID)
     Route: 041
     Dates: start: 20170410, end: 20170412
  3. LEVETIRACETAM. [Suspect]
     Active Substance: LEVETIRACETAM
     Dosage: 1000MG A DAY
     Route: 041
     Dates: start: 20170526, end: 2017
  4. LEVETIRACETAM. [Suspect]
     Active Substance: LEVETIRACETAM
     Dosage: 500MG DAILY
     Route: 041
     Dates: start: 20170603, end: 20170607
  5. CERCINE [Concomitant]
     Active Substance: DIAZEPAM
     Dosage: 5 MG, ONCE DAILY (QD)
     Dates: start: 20170506, end: 20170506
  6. CERCINE [Concomitant]
     Active Substance: DIAZEPAM
     Indication: FOCAL DYSCOGNITIVE SEIZURES
     Dosage: 5 MG, ONCE DAILY (QD)
     Dates: start: 20170409, end: 20170411
  7. LEVETIRACETAM. [Suspect]
     Active Substance: LEVETIRACETAM
     Dosage: 500 MG, 3X/DAY (TID)
     Route: 041
     Dates: start: 20170413, end: 20170525
  8. CERCINE [Concomitant]
     Active Substance: DIAZEPAM
     Dosage: 5 MG, ONCE DAILY (QD)
     Dates: start: 20170420, end: 20170420

REACTIONS (7)
  - Blood creatine phosphokinase increased [Unknown]
  - Blood albumin decreased [Unknown]
  - Gamma-glutamyltransferase increased [Unknown]
  - Aspartate aminotransferase increased [Unknown]
  - Metastases to central nervous system [Fatal]
  - Inappropriate schedule of drug administration [Unknown]
  - Blood lactate dehydrogenase increased [Unknown]

NARRATIVE: CASE EVENT DATE: 2017
